FAERS Safety Report 22390001 (Version 2)
Quarter: 2023Q2

REPORT INFORMATION
  Report Type: Spontaneous
  Country: US (occurrence: US)
  Receive Date: 20230531
  Receipt Date: 20230628
  Transmission Date: 20230721
  Serious: Yes (Other)
  Sender: FDA-Public Use
  Company Number: US-BAYER-2023A073292

PATIENT
  Age: 5 Decade
  Sex: Female

DRUGS (5)
  1. CIPROFLOXACIN [Interacting]
     Active Substance: CIPROFLOXACIN
     Indication: Incision site cellulitis
     Dosage: UNK
     Dates: start: 20230301, end: 20230308
  2. FENTANYL [Interacting]
     Active Substance: FENTANYL
     Indication: Breakthrough pain
     Dosage: 37 ?G, Q1HR
     Route: 062
     Dates: start: 2022
  3. FENTANYL [Interacting]
     Active Substance: FENTANYL
     Indication: Breakthrough pain
     Dosage: 50 UNK, Q1HR
  4. AMOXICILLIN\CLAVULANIC ACID [Concomitant]
     Active Substance: AMOXICILLIN\CLAVULANIC ACID
     Indication: Incision site cellulitis
  5. HYDROMORPHONE [Concomitant]
     Active Substance: HYDROMORPHONE
     Indication: Breakthrough pain
     Dosage: 4 MG

REACTIONS (5)
  - Fatigue [Recovered/Resolved]
  - Hypersomnia [Recovered/Resolved]
  - Myoclonus [Recovered/Resolved]
  - Confusional state [Recovered/Resolved]
  - Labelled drug-drug interaction medication error [Recovered/Resolved]

NARRATIVE: CASE EVENT DATE: 20230304
